FAERS Safety Report 5648957-5 (Version None)
Quarter: 2008Q1

REPORT INFORMATION
  Report Type: 
  Country: None (occurrence: None)
  Receive Date: 20080304
  Receipt Date: 20080130
  Transmission Date: 20080703
  Serious: No
  Sender: FDA-Public Use
  Company Number: US-BAYER-200812576NA

PATIENT
  Age: 46 Year
  Sex: Male
  Weight: 70 kg

DRUGS (2)
  1. ULTRAVIST 370 [Suspect]
     Indication: COMPUTERISED TOMOGRAM
     Dosage: AS USED: 15 ML
     Route: 042
     Dates: start: 20080129, end: 20080129
  2. ZANTAC 150 [Concomitant]

REACTIONS (1)
  - URTICARIA [None]
